FAERS Safety Report 11707123 (Version 1)
Quarter: 2015Q4

REPORT INFORMATION
  Report Type: Report from Study
  Country: US (occurrence: US)
  Receive Date: 20151106
  Receipt Date: 20151106
  Transmission Date: 20160304
  Serious: Yes (Other)
  Sender: FDA-Public Use
  Company Number: US-WATSON-2015-17590

PATIENT
  Age: 15 Year
  Sex: Female
  Weight: 52.5 kg

DRUGS (2)
  1. ONEXTON [Suspect]
     Active Substance: BENZOYL PEROXIDE\CLINDAMYCIN PHOSPHATE
     Indication: ACNE
     Dosage: UNK
     Route: 065
     Dates: start: 20150624, end: 20150817
  2. BLINDED CLINDAMYCIN PHOS-BENZ PEROXIDE STUDY DRUG (WATSON-UTAH-1%/5%) [Suspect]
     Active Substance: BENZOYL PEROXIDE\CLINDAMYCIN
     Indication: ACNE
     Dosage: UNK
     Route: 065
     Dates: start: 20150624, end: 20150817

REACTIONS (2)
  - Anaphylactoid reaction [Recovered/Resolved]
  - Allergy to arthropod sting [Recovered/Resolved]

NARRATIVE: CASE EVENT DATE: 20150624
